FAERS Safety Report 20663496 (Version 1)
Quarter: 2022Q2

REPORT INFORMATION
  Report Type: Spontaneous
  Country: US (occurrence: US)
  Receive Date: 20220401
  Receipt Date: 20220401
  Transmission Date: 20220721
  Serious: Yes (Other)
  Sender: FDA-Public Use
  Company Number: US-drreddys-LIT/USA/22/0148274

PATIENT
  Sex: Male

DRUGS (4)
  1. DIVALPROEX SODIUM [Suspect]
     Active Substance: DIVALPROEX SODIUM
     Indication: Tourette^s disorder
  2. CLONIDINE [Suspect]
     Active Substance: CLONIDINE
     Indication: Tourette^s disorder
  3. GUANFACINE [Suspect]
     Active Substance: GUANFACINE
     Indication: Tourette^s disorder
  4. TETRABENAZINE [Suspect]
     Active Substance: TETRABENAZINE
     Indication: Tourette^s disorder

REACTIONS (1)
  - Treatment failure [Unknown]
